FAERS Safety Report 17489101 (Version 1)
Quarter: 2020Q1

REPORT INFORMATION
  Report Type: Spontaneous
  Country: US (occurrence: US)
  Receive Date: 20200303
  Receipt Date: 20200303
  Transmission Date: 20200409
  Serious: No
  Sender: FDA-Public Use
  Company Number: US-PERRIGO-19US011933

PATIENT
  Age: 53 Year
  Sex: Female
  Weight: 59.86 kg

DRUGS (2)
  1. NAPROXEN SODIUM. [Suspect]
     Active Substance: NAPROXEN SODIUM
     Indication: SWELLING
  2. NAPROXEN SODIUM. [Suspect]
     Active Substance: NAPROXEN SODIUM
     Indication: ARTHRALGIA
     Dosage: 220 MG, EVERY 8 TO 12 HOURS
     Route: 048
     Dates: start: 201909, end: 20191001

REACTIONS (4)
  - Off label use [Recovered/Resolved]
  - Incorrect product administration duration [Recovered/Resolved]
  - Contraindicated product administered [Recovered/Resolved]
  - Therapeutic product effect decreased [Unknown]

NARRATIVE: CASE EVENT DATE: 201909
